FAERS Safety Report 4351127-4 (Version None)
Quarter: 2004Q2

REPORT INFORMATION
  Report Type: 
  Country: None (occurrence: None)
  Receive Date: 20040430
  Receipt Date: 20020806
  Transmission Date: 20050107
  Serious: Yes (Hospitalization)
  Sender: FDA-Public Use
  Company Number: US-MERCK-0208USA02112

PATIENT
  Age: 51 Year
  Sex: Male

DRUGS (5)
  1. NORVASC [Concomitant]
     Route: 065
  2. ASPIRIN [Concomitant]
     Route: 065
  3. ATENOLOL [Concomitant]
     Route: 048
  4. PRILOSEC [Concomitant]
     Route: 048
  5. ZOCOR [Suspect]
     Route: 048
     Dates: start: 19990303, end: 20001105

REACTIONS (18)
  - ALANINE AMINOTRANSFERASE INCREASED [None]
  - ASPARTATE AMINOTRANSFERASE INCREASED [None]
  - CHEST PAIN [None]
  - DIVERTICULUM [None]
  - DRUG HYPERSENSITIVITY [None]
  - ELECTROCARDIOGRAM ST SEGMENT ABNORMAL [None]
  - ELECTROCARDIOGRAM T WAVE ABNORMAL [None]
  - HEPATIC FUNCTION ABNORMAL [None]
  - HYPERSENSITIVITY [None]
  - LYMPHOPENIA [None]
  - MYOPATHY [None]
  - MYOSITIS [None]
  - PLEURAL EFFUSION [None]
  - PNEUMONIA [None]
  - RHABDOMYOLYSIS [None]
  - THROMBOCYTOPENIA [None]
  - UPPER RESPIRATORY TRACT INFECTION [None]
  - WHITE BLOOD CELL COUNT DECREASED [None]
